FAERS Safety Report 9435035 (Version 1)
Quarter: 2013Q3

REPORT INFORMATION
  Report Type: Report from Study
  Country: BR (occurrence: BR)
  Receive Date: 20130801
  Receipt Date: 20130801
  Transmission Date: 20140515
  Serious: Yes (Other)
  Sender: FDA-Public Use
  Company Number: PHHY2013BR082377

PATIENT
  Age: 72 Year
  Sex: Male

DRUGS (4)
  1. ACLASTA [Suspect]
     Indication: OSTEOPENIA
     Dosage: UNK UKN, UNK
     Route: 042
     Dates: start: 20130729
  2. METFORMIN [Concomitant]
     Dosage: UNK UKN, UNK
  3. ATORVASTATIN CALCIUM [Concomitant]
     Dosage: UNK UKN, UNK
  4. EUTHYROX [Concomitant]
     Dosage: UNK UKN, UNK

REACTIONS (5)
  - Insomnia [Recovering/Resolving]
  - Myalgia [Recovering/Resolving]
  - Arthralgia [Recovering/Resolving]
  - Bone pain [Recovering/Resolving]
  - Headache [Recovering/Resolving]
